FAERS Safety Report 10165779 (Version 2)
Quarter: 2014Q4

REPORT INFORMATION
  Report Type: Spontaneous
  Country: US (occurrence: US)
  Receive Date: 20140510
  Receipt Date: 20141205
  Transmission Date: 20150528
  Serious: No
  Sender: FDA-Public Use
  Company Number: US-BRISTOL-MYERS SQUIBB COMPANY-19933274

PATIENT
  Age: 52 Year
  Sex: Male

DRUGS (2)
  1. GLIMEPIRIDE. [Concomitant]
     Active Substance: GLIMEPIRIDE
  2. BYDUREON [Suspect]
     Active Substance: EXENATIDE
     Indication: TYPE 2 DIABETES MELLITUS
     Route: 058
     Dates: start: 201312

REACTIONS (7)
  - Expired product administered [Unknown]
  - Flatulence [Unknown]
  - Nausea [Unknown]
  - Injection site swelling [Unknown]
  - Diarrhoea [Unknown]
  - Abdominal discomfort [Unknown]
  - Impaired gastric emptying [Unknown]
